FAERS Safety Report 6736506-X (Version None)
Quarter: 2010Q2

REPORT INFORMATION
  Report Type: 
  Country: None (occurrence: None)
  Receive Date: 20100521
  Receipt Date: 20100519
  Transmission Date: 20101027
  Serious: Yes (Other)
  Sender: FDA-Public Use
  Company Number: CH-BRISTOL-MYERS SQUIBB COMPANY-15112493

PATIENT
  Age: 50 Year
  Sex: Male

DRUGS (5)
  1. PARAPLATIN [Suspect]
     Indication: TONSIL CANCER
     Route: 041
     Dates: start: 20100201, end: 20100311
  2. ERBITUX [Suspect]
     Indication: TONSIL CANCER
     Route: 041
     Dates: start: 20100211
  3. CISPLATIN [Suspect]
     Indication: TONSIL CANCER
     Dosage: FOR 2 CYCLES, CISPLATIN HAD BEEN REPLACED WITH CARBOPLATIN
     Dates: start: 20100211
  4. FLUOROURACIL [Suspect]
     Indication: TONSIL CANCER
     Route: 041
     Dates: start: 20100211
  5. RADIATION THERAPY [Suspect]
     Indication: TONSIL CANCER

REACTIONS (3)
  - FATIGUE [None]
  - MUCOSAL INFLAMMATION [None]
  - VASOSPASM [None]
